FAERS Safety Report 9636777 (Version 2)
Quarter: 2013Q4

REPORT INFORMATION
  Report Type: Report from Study
  Country: AR (occurrence: AR)
  Receive Date: 20131022
  Receipt Date: 20131031
  Transmission Date: 20140711
  Serious: Yes (Hospitalization)
  Sender: FDA-Public Use
  Company Number: AR-ROCHE-1290892

PATIENT
  Sex: Female

DRUGS (1)
  1. ACTEMRA [Suspect]
     Indication: RHEUMATOID ARTHRITIS
     Dosage: DOSE OF TOCILIZUMAB IN JUL 2013. DOSE WAS KEPT WITHELD FROM JAN/2013 TO JUN/2013
     Route: 065
     Dates: start: 2011, end: 201310

REACTIONS (15)
  - Blood pressure increased [Unknown]
  - Vomiting [Unknown]
  - Dizziness [Unknown]
  - Dehydration [Unknown]
  - Pancreatic disorder [Unknown]
  - Hepatic steatosis [Unknown]
  - Abdominal distension [Unknown]
  - Fatigue [Unknown]
  - Liver disorder [Unknown]
  - Hypertension [Unknown]
  - Abdominal distension [Unknown]
  - Localised intraabdominal fluid collection [Recovered/Resolved]
  - Fall [Unknown]
  - Upper limb fracture [Unknown]
  - Face injury [Unknown]
